FAERS Safety Report 13742518 (Version 1)
Quarter: 2017Q3

REPORT INFORMATION
  Report Type: Spontaneous
  Country: US (occurrence: US)
  Receive Date: 20170711
  Receipt Date: 20170711
  Transmission Date: 20171127
  Serious: Yes (Other)
  Sender: FDA-Public Use
  Company Number: US-LANNETT COMPANY, INC.-US-2017LAN000905

PATIENT
  Age: 52 Year
  Sex: Female

DRUGS (4)
  1. LETROZOLE. [Suspect]
     Active Substance: LETROZOLE
     Indication: ADJUVANT THERAPY
     Dosage: UNK
     Route: 065
  2. LETROZOLE. [Suspect]
     Active Substance: LETROZOLE
     Indication: BREAST CANCER
  3. DENOSUMAB [Suspect]
     Active Substance: DENOSUMAB
     Indication: BREAST CANCER
  4. DENOSUMAB [Suspect]
     Active Substance: DENOSUMAB
     Indication: ADJUVANT THERAPY
     Dosage: UNK
     Route: 065

REACTIONS (1)
  - Intracardiac thrombus [Not Recovered/Not Resolved]
